FAERS Safety Report 9573060 (Version 1)
Quarter: 2013Q4

REPORT INFORMATION
  Report Type: Spontaneous
  Country: IT (occurrence: IT)
  Receive Date: 20131001
  Receipt Date: 20131001
  Transmission Date: 20140711
  Serious: Yes (Hospitalization)
  Sender: FDA-Public Use
  Company Number: IT-TEVA-434279ISR

PATIENT
  Age: 91 Year
  Sex: Female

DRUGS (1)
  1. CARBAMAZEPINA [Suspect]
     Indication: TRIGEMINAL NEURALGIA
     Dosage: 200 MILLIGRAM DAILY;
     Route: 048
     Dates: start: 20130719, end: 20130719

REACTIONS (1)
  - Psychomotor retardation [Unknown]
